FAERS Safety Report 4907313-5 (Version None)
Quarter: 2006Q1

REPORT INFORMATION
  Report Type: 
  Country: None (occurrence: None)
  Receive Date: 20060208
  Receipt Date: 20060208
  Transmission Date: 20060701
  Serious: Yes (Hospitalization)
  Sender: FDA-Public Use
  Company Number: None

PATIENT
  Age: 57 Year
  Sex: Male

DRUGS (3)
  1. DACARBAZINE [Suspect]
     Indication: NEOPLASM MALIGNANT
     Dosage: 650 MG
     Dates: start: 20051110
  2. VINCRISTINE [Suspect]
     Indication: NEOPLASM MALIGNANT
     Dosage: 40 MG
     Dates: start: 20051110
  3. DOXORUBICIN HCL [Suspect]
     Indication: NEOPLASM MALIGNANT
     Dosage: 40 MG
     Dates: start: 20051110

REACTIONS (1)
  - FEBRILE NEUTROPENIA [None]
